FAERS Safety Report 23070109 (Version 3)
Quarter: 2023Q4

REPORT INFORMATION
  Report Type: Spontaneous
  Country: BR (occurrence: BR)
  Receive Date: 20231016
  Receipt Date: 20231219
  Transmission Date: 20240109
  Serious: Yes (Life-Threatening, Hospitalization, Other)
  Sender: FDA-Public Use
  Company Number: BR-ELI_LILLY_AND_COMPANY-BR202310003794

PATIENT
  Sex: Female
  Weight: 70 kg

DRUGS (1)
  1. HUMULIN N [Suspect]
     Active Substance: INSULIN HUMAN
     Indication: Product used for unknown indication
     Dosage: UNK UNK, UNKNOWN
     Route: 065

REACTIONS (10)
  - Coma [Unknown]
  - Dyspnoea [Recovered/Resolved]
  - Wrist fracture [Unknown]
  - Humerus fracture [Unknown]
  - Hypoglycaemic unconsciousness [Unknown]
  - Hypoaesthesia [Unknown]
  - Osteoarthritis [Unknown]
  - Gait inability [Recovered/Resolved]
  - Dysstasia [Unknown]
  - Hypoglycaemia [Unknown]
